FAERS Safety Report 8910958 (Version 1)
Quarter: 2012Q4

REPORT INFORMATION
  Report Type: 
  Country: US (occurrence: US)
  Receive Date: 20121115
  Receipt Date: 20121115
  Transmission Date: 20130627
  Serious: No
  Sender: FDA-Public Use
  Company Number: US-ASTRAZENECA-2012SE84230

PATIENT
  Age: 55 Year
  Sex: Male
  Weight: 90.7 kg

DRUGS (7)
  1. SEROQUEL XR [Suspect]
     Indication: BIPOLAR DISORDER
     Route: 048
     Dates: start: 201201
  2. COUMADIN [Concomitant]
  3. XANAX [Concomitant]
  4. CYMBALTA [Concomitant]
  5. MORPHINE [Concomitant]
  6. AVINZA [Concomitant]
  7. HYDROCODONE [Concomitant]
     Indication: INJURY

REACTIONS (1)
  - Divorced [Unknown]
